FAERS Safety Report 10738289 (Version 1)
Quarter: 2015Q1

REPORT INFORMATION
  Report Type: Spontaneous
  Country: US (occurrence: None)
  Receive Date: 20150122
  Receipt Date: 20150122
  Transmission Date: 20150721
  Serious: No
  Sender: FDA-Public Use
  Company Number: None

PATIENT
  Age: 61 Year
  Sex: Female

DRUGS (8)
  1. BUPROPION HCL [Suspect]
     Active Substance: BUPROPION HYDROCHLORIDE
     Indication: ANTIDEPRESSANT THERAPY
     Route: 048
     Dates: start: 20141210, end: 20141217
  2. ESTRACE [Concomitant]
     Active Substance: ESTRADIOL
  3. MULTIVITAMIN [Concomitant]
     Active Substance: VITAMINS
  4. CURCUMIN [Concomitant]
     Active Substance: CURCUMIN
  5. OMEGA 3 [Concomitant]
     Active Substance: OMEGA-3 FATTY ACIDS
  6. BUSPIRONE [Concomitant]
     Active Substance: BUSPIRONE HYDROCHLORIDE
  7. PROBIOTIC [Concomitant]
     Active Substance: PROBIOTICS NOS
  8. VITAMIN E [Concomitant]
     Active Substance: .ALPHA.-TOCOPHEROL

REACTIONS (5)
  - Asthenia [None]
  - Depressed mood [None]
  - Tearfulness [None]
  - Anhedonia [None]
  - Expired product administered [None]

NARRATIVE: CASE EVENT DATE: 20141217
